FAERS Safety Report 7985552-7 (Version None)
Quarter: 2011Q4

REPORT INFORMATION
  Report Type: 
  Country: None (occurrence: None)
  Receive Date: 20111216
  Receipt Date: 20111207
  Transmission Date: 20120403
  Serious: Yes (Other)
  Sender: FDA-Public Use
  Company Number: US-JNJFOC-20111203503

PATIENT
  Sex: Female
  Weight: 75.3 kg

DRUGS (8)
  1. HYZAAR [Concomitant]
     Indication: HYPERTENSION
     Route: 065
  2. LIPITOR [Concomitant]
     Indication: BLOOD CHOLESTEROL INCREASED
     Route: 065
  3. DEPAKOTE [Concomitant]
     Route: 065
     Dates: end: 20111001
  4. TOPAMAX [Suspect]
     Indication: BIPOLAR DISORDER
     Route: 048
     Dates: start: 20111006, end: 20111001
  5. NORVASC [Concomitant]
     Indication: HYPERTENSION
     Route: 065
  6. TOPAMAX [Suspect]
     Route: 048
     Dates: start: 20111001, end: 20110101
  7. TOPAMAX [Suspect]
     Route: 048
     Dates: start: 20110101, end: 20111101
  8. METFORMIN HCL [Concomitant]
     Indication: TYPE 2 DIABETES MELLITUS
     Route: 065

REACTIONS (5)
  - MANIA [None]
  - DYSURIA [None]
  - TOXICITY TO VARIOUS AGENTS [None]
  - CONDITION AGGRAVATED [None]
  - POLLAKIURIA [None]
